FAERS Safety Report 4398371-8 (Version None)
Quarter: 2004Q3

REPORT INFORMATION
  Report Type: 
  Country: None (occurrence: None)
  Receive Date: 20040713
  Receipt Date: 20040706
  Transmission Date: 20050211
  Serious: Yes (Hospitalization)
  Sender: FDA-Public Use
  Company Number: JP-JNJFOC-20040608203

PATIENT
  Age: 54 Year
  Sex: Male

DRUGS (9)
  1. ITRIZOLE (ITRACONAZOLE) UNSPECIFIED [Suspect]
     Indication: ONYCHOMYCOSIS
     Dosage: 400 MG, IN 1 DAY, ORAL
     Route: 048
     Dates: start: 20040616, end: 20040622
  2. ITRIZOLE (ITRACONAZOLE) UNSPECIFIED [Suspect]
     Indication: ONYCHOMYCOSIS
     Dosage: 400 MG, IN 1 DAY, ORAL
     Route: 048
     Dates: start: 20040622, end: 20040626
  3. NORVASC (AMLODIPINE BESILATE) UNSPECIFIED [Concomitant]
  4. BEZAFIBRATE (BEZAFIBRATE) UNSPECIFIED [Concomitant]
  5. URINORM (BENZBROMARONE) UNSPECIFIED [Concomitant]
  6. RITODRINE HYDROCHLORIDE (RITODRINE HYDROCHLORIDE) [Concomitant]
  7. FAMOTIDINE (FAMOTIDINE) UNSPECIFIED [Concomitant]
  8. TEPRENONE (TEPRENONE) UNSPECIFIED [Concomitant]
  9. POTASSIUM CITRATE SODIUM CITRATE (ALL OTHER THERAPEUTIC PRODUCTS) [Concomitant]

REACTIONS (2)
  - DRUG ERUPTION [None]
  - ERYTHEMA MULTIFORME [None]
